FAERS Safety Report 18406828 (Version 1)
Quarter: 2020Q4

REPORT INFORMATION
  Report Type: Spontaneous
  Country: CH (occurrence: CH)
  Receive Date: 20201020
  Receipt Date: 20201020
  Transmission Date: 20210114
  Serious: Yes (Other)
  Sender: FDA-Public Use
  Company Number: CH-009507513-2010CHE005631

PATIENT
  Age: 62 Year
  Sex: Female

DRUGS (1)
  1. PEMBROLIZUMAB. [Suspect]
     Active Substance: PEMBROLIZUMAB
     Indication: METASTATIC MALIGNANT MELANOMA
     Dosage: UNK
     Dates: start: 201604

REACTIONS (5)
  - Vitiligo [Unknown]
  - Lichenoid keratosis [Unknown]
  - Graft versus host disease in skin [Unknown]
  - Therapy non-responder [Unknown]
  - Blood creatine phosphokinase increased [Unknown]
